FAERS Safety Report 8708304 (Version 5)
Quarter: 2014Q3

REPORT INFORMATION
  Report Type: Spontaneous
  Country: US (occurrence: US)
  Receive Date: 20120806
  Receipt Date: 20140729
  Transmission Date: 20150326
  Serious: Yes (Hospitalization, Disabling, Other)
  Sender: FDA-Public Use
  Company Number: US-009507513-1208USA000213

PATIENT
  Sex: Female
  Weight: 136.5 kg

DRUGS (1)
  1. NUVARING [Suspect]
     Active Substance: ETHINYL ESTRADIOL\ETONOGESTREL
     Indication: CONTRACEPTION
     Dosage: UNK
     Route: 067
     Dates: start: 2005, end: 20060808

REACTIONS (18)
  - Gastric bypass [Unknown]
  - Rotator cuff syndrome [Unknown]
  - Plantar fasciitis [Unknown]
  - Headache [Recovered/Resolved]
  - Ligament sprain [Unknown]
  - Anticoagulation drug level below therapeutic [Unknown]
  - Chest pain [Unknown]
  - Otitis externa [Unknown]
  - Abdominal pain [Unknown]
  - Dehydration [Unknown]
  - Urinary tract infection [Unknown]
  - Accident at work [Unknown]
  - Treatment noncompliance [Unknown]
  - Sinusitis [Unknown]
  - Deep vein thrombosis [Unknown]
  - Spinal laminectomy [Unknown]
  - Deep vein thrombosis [Unknown]
  - Dyspnoea [Unknown]

NARRATIVE: CASE EVENT DATE: 200601
